FAERS Safety Report 17895280 (Version 1)
Quarter: 2020Q2

REPORT INFORMATION
  Report Type: Spontaneous
  Country: US (occurrence: US)
  Receive Date: 20200612
  Receipt Date: 20200612
  Transmission Date: 20200714
  Serious: Yes (Death, Life-Threatening)
  Sender: FDA-Public Use
  Company Number: None

PATIENT
  Age: 71 Year
  Sex: Male
  Weight: 72.9 kg

DRUGS (4)
  1. HEPARIN [Suspect]
     Active Substance: HEPARIN SODIUM
  2. ALARIS MEDSYSTEM III IV INFUSION PUMP [Suspect]
     Active Substance: DEVICE
  3. EPINEPHRINE. [Suspect]
     Active Substance: EPINEPHRINE
  4. AMIODARONE [Suspect]
     Active Substance: AMIODARONE

REACTIONS (4)
  - Bradycardia [None]
  - Cardiac arrest [None]
  - Device delivery system issue [None]
  - Pulse absent [None]

NARRATIVE: CASE EVENT DATE: 20200601
